FAERS Safety Report 20451632 (Version 1)
Quarter: 2022Q1

REPORT INFORMATION
  Report Type: Spontaneous
  Country: US (occurrence: US)
  Receive Date: 20220209
  Receipt Date: 20220209
  Transmission Date: 20220423
  Serious: No
  Sender: FDA-Public Use
  Company Number: US-NOVARTISTESTPH-NVSC2021US263532

PATIENT
  Sex: Female

DRUGS (1)
  1. PATADAY [Suspect]
     Active Substance: OLOPATADINE HYDROCHLORIDE
     Indication: Ocular hyperaemia
     Dosage: UNK UNK, BID (TWICE A DAY RELIEF ALLERGIC AISLE)
     Route: 047

REACTIONS (2)
  - Eyelid margin crusting [Recovered/Resolved]
  - Intraocular pressure increased [Recovered/Resolved]
